FAERS Safety Report 4676278-6 (Version None)
Quarter: 2005Q2

REPORT INFORMATION
  Report Type: 
  Country: None (occurrence: None)
  Receive Date: 20050527
  Receipt Date: 20050214
  Transmission Date: 20051028
  Serious: No
  Sender: FDA-Public Use
  Company Number: US-GLAXOSMITHKLINE-A0545458A

PATIENT
  Age: 77 Year
  Sex: Female

DRUGS (6)
  1. WELLBUTRIN XL [Suspect]
     Indication: DEPRESSION
     Dosage: 150MG PER DAY
     Route: 048
     Dates: start: 20050208
  2. LIPITOR [Concomitant]
  3. NORVASC [Concomitant]
  4. VITAMINS [Concomitant]
  5. GABAPENTIN [Concomitant]
  6. TYLENOL (CAPLET) [Concomitant]

REACTIONS (3)
  - ANOREXIA [None]
  - DEPRESSION [None]
  - INSOMNIA [None]
